FAERS Safety Report 5352261-2 (Version None)
Quarter: 2007Q2

REPORT INFORMATION
  Report Type: 
  Country: None (occurrence: None)
  Receive Date: 20070611
  Receipt Date: 20070604
  Transmission Date: 20071010
  Serious: No
  Sender: FDA-Public Use
  Company Number: US-AVENTIS-200712901US

PATIENT
  Age: 18 Year
  Sex: Female
  Weight: 77 kg

DRUGS (5)
  1. LOVENOX [Suspect]
     Dates: start: 20070421
  2. LOVENOX [Suspect]
     Dates: start: 20070418, end: 20070420
  3. LOVENOX [Suspect]
     Dates: start: 20070408, end: 20070417
  4. DARVOCET-N 100 [Concomitant]
     Dosage: DOSE: UNK
  5. TYLENOL [Concomitant]
     Dosage: DOSE: UNK

REACTIONS (1)
  - DRUG EXPOSURE DURING PREGNANCY [None]
